FAERS Safety Report 15751081 (Version 1)
Quarter: 2018Q4

REPORT INFORMATION
  Report Type: Spontaneous
  Country: US (occurrence: US)
  Receive Date: 20181221
  Receipt Date: 20181221
  Transmission Date: 20190205
  Serious: No
  Sender: FDA-Public Use
  Company Number: US-THERAPEUTICSMD-2018TMD00231

PATIENT
  Age: 67 Year
  Sex: Female
  Weight: 73.92 kg

DRUGS (3)
  1. UNSPECIFIED ANTIHISTAMINE [Concomitant]
     Active Substance: ANTIHISTAMINES NOS
     Dosage: UNK, AS NEEDED
  2. UNSPECIFIED VITAMINS [Concomitant]
     Active Substance: VITAMINS
  3. IMVEXXY [Suspect]
     Active Substance: ESTRADIOL
     Indication: VULVOVAGINAL DRYNESS
     Dosage: 10 ?G, 1X/DAY; BEFORE BEDTIME
     Route: 067
     Dates: start: 20180919, end: 20181002

REACTIONS (2)
  - Off label use [Recovered/Resolved]
  - Rash generalised [Recovered/Resolved]

NARRATIVE: CASE EVENT DATE: 20180919
